FAERS Safety Report 8440411-0 (Version None)
Quarter: 2012Q2

REPORT INFORMATION
  Report Type: 
  Country: None (occurrence: None)
  Receive Date: 20120607
  Receipt Date: 20120418
  Transmission Date: 20120825
  Serious: Yes (Hospitalization)
  Sender: FDA-Public Use
  Company Number: 2012SP021390

PATIENT
  Age: 48 Year
  Sex: Female

DRUGS (3)
  1. SYCREST (ASENAPINE /05706901/) (5 MG) [Suspect]
     Indication: BIPOLAR DISORDER
     Dosage: 5 MG, BID, SL
     Dates: start: 20120404, end: 20120411
  2. DIPIPERON [Concomitant]
  3. ZYPREXA [Concomitant]

REACTIONS (2)
  - SUICIDAL IDEATION [None]
  - DEPRESSIVE SYMPTOM [None]
